FAERS Safety Report 25763123 (Version 1)
Quarter: 2025Q3

REPORT INFORMATION
  Report Type: Spontaneous
  Country: JP (occurrence: JP)
  Receive Date: 20250905
  Receipt Date: 20250905
  Transmission Date: 20251021
  Serious: Yes (Hospitalization, Other)
  Sender: NOVARTIS
  Company Number: JP-002147023-NVSJ2025JP008782

PATIENT
  Age: 90 Year
  Sex: Female

DRUGS (4)
  1. VALSARTAN [Suspect]
     Active Substance: VALSARTAN
     Indication: Hypertension
     Route: 048
     Dates: end: 202507
  2. AMLODIPINE [Concomitant]
     Active Substance: AMLODIPINE BESYLATE
     Indication: Product used for unknown indication
     Route: 048
     Dates: end: 202507
  3. ROSUVASTATIN [Concomitant]
     Active Substance: ROSUVASTATIN
     Indication: Product used for unknown indication
     Route: 048
     Dates: end: 202507
  4. ROSUVASTATIN [Concomitant]
     Active Substance: ROSUVASTATIN
     Route: 065
     Dates: start: 202507

REACTIONS (9)
  - Acute myocardial infarction [Unknown]
  - Chest pain [Unknown]
  - Dyspnoea [Unknown]
  - Cold sweat [Unknown]
  - Sense of oppression [Unknown]
  - Ventricular hypokinesia [Unknown]
  - Cardiac failure [Unknown]
  - Pulmonary congestion [Unknown]
  - Blood pressure systolic increased [Unknown]

NARRATIVE: CASE EVENT DATE: 20250701
